FAERS Safety Report 4717915-7 (Version None)
Quarter: 2005Q3

REPORT INFORMATION
  Report Type: 
  Country: None (occurrence: None)
  Receive Date: 20050715
  Receipt Date: 20050706
  Transmission Date: 20060218
  Serious: Yes (Hospitalization)
  Sender: FDA-Public Use
  Company Number: 2005-02414

PATIENT
  Age: 27 Week
  Sex: Male

DRUGS (1)
  1. DEXAMETHASONE ACETATE [Suspect]
     Indication: LARYNGEAL STENOSIS
     Dosage: 1 MG/KG,DAILY

REACTIONS (1)
  - VENTRICULAR HYPERTROPHY [None]
